FAERS Safety Report 9000563 (Version 1)
Quarter: 2013Q1

REPORT INFORMATION
  Report Type: Spontaneous
  Country: US (occurrence: None)
  Receive Date: 20130102
  Receipt Date: 20130102
  Transmission Date: 20140127
  Serious: Yes (Disabling, Other)
  Sender: FDA-Public Use
  Company Number: None

PATIENT
  Sex: Female
  Weight: 96.8 kg

DRUGS (1)
  1. DEPOT LUPRON 3.75 MG [Suspect]
     Dosage: NARRATIVE PARTIALLY ILLEGIBLE?INTRAVENTRICULAR INJECTION?MARCH, APRIL, MAY 2012
     Route: 018

REACTIONS (38)
  - Dizziness [None]
  - Nausea [None]
  - Fatigue [None]
  - Muscular weakness [None]
  - Myalgia [None]
  - Arthralgia [None]
  - Insomnia [None]
  - Judgement impaired [None]
  - Memory impairment [None]
  - Tremor [None]
  - Hot flush [None]
  - Headache [None]
  - Tinnitus [None]
  - Vertigo [None]
  - Vision blurred [None]
  - Aphasia [None]
  - Dysphemia [None]
  - Tenosynovitis [None]
  - Heart rate irregular [None]
  - Gastrointestinal disorder [None]
  - Alopecia [None]
  - Bone loss [None]
  - Eyelid oedema [None]
  - Temperature intolerance [None]
  - Libido decreased [None]
  - Night sweats [None]
  - Anxiety [None]
  - Nervousness [None]
  - Pollakiuria [None]
  - Diarrhoea [None]
  - Acne [None]
  - Dry skin [None]
  - Oedema [None]
  - Fibrin increased [None]
  - Breast atrophy [None]
  - Multiple sclerosis [None]
  - Hypothyroidism [None]
  - Fibromyalgia [None]
